FAERS Safety Report 7408079-X (Version None)
Quarter: 2011Q2

REPORT INFORMATION
  Report Type: 
  Country: None (occurrence: None)
  Receive Date: 20110408
  Receipt Date: 20110408
  Transmission Date: 20111010
  Serious: Yes (Hospitalization)
  Sender: FDA-Public Use
  Company Number: None

PATIENT
  Sex: Female
  Weight: 112.9 kg

DRUGS (3)
  1. VANCOMYCIN [Suspect]
     Indication: POSTOPERATIVE WOUND INFECTION
     Dosage: VARIED IV BOLUS
     Route: 040
  2. ERTAPENEM [Suspect]
     Indication: POSTOPERATIVE WOUND INFECTION
     Dosage: 1GM DAILY IV BOLUS
     Route: 040
  3. INVANZ [Concomitant]

REACTIONS (2)
  - DRUG RASH WITH EOSINOPHILIA AND SYSTEMIC SYMPTOMS [None]
  - HYPERSENSITIVITY [None]
